FAERS Safety Report 6875319-5 (Version None)
Quarter: 2010Q3

REPORT INFORMATION
  Report Type: 
  Country: None (occurrence: None)
  Receive Date: 20100727
  Receipt Date: 20070702
  Transmission Date: 20110219
  Serious: Yes (Hospitalization)
  Sender: FDA-Public Use
  Company Number: US-PFIZER INC-2006117062

PATIENT
  Sex: Male
  Weight: 97.5 kg

DRUGS (5)
  1. CELEBREX [Suspect]
     Indication: PAIN
     Route: 048
     Dates: start: 20011127, end: 20050601
  2. VIOXX [Suspect]
     Indication: PAIN
     Route: 048
     Dates: start: 20010620, end: 20020308
  3. ISOSORBIDE [Concomitant]
  4. LIPITOR [Concomitant]
  5. PROPOXYPHENE NAPSYLATE W/ ACETAMINOPHEN [Concomitant]

REACTIONS (1)
  - MYOCARDIAL INFARCTION [None]
